FAERS Safety Report 5287251-1 (Version None)
Quarter: 2007Q1

REPORT INFORMATION
  Report Type: 
  Country: None (occurrence: None)
  Receive Date: 20070116
  Receipt Date: 20061009
  Transmission Date: 20070707
  Serious: No
  Sender: FDA-Public Use
  Company Number: 2006SP003592

PATIENT
  Age: 78 Year
  Sex: Female
  Weight: 56.246 kg

DRUGS (5)
  1. LUNESTA [Suspect]
     Indication: INSOMNIA
     Dosage: 3 MG;HS;ORAL
     Route: 048
     Dates: start: 20060401
  2. LOPID [Concomitant]
  3. SYNTHROID [Concomitant]
  4. EVISTA [Concomitant]
  5. ZOLOFT [Concomitant]

REACTIONS (2)
  - ALOPECIA [None]
  - REBOUND EFFECT [None]
